FAERS Safety Report 5356864-0 (Version None)
Quarter: 2007Q2

REPORT INFORMATION
  Report Type: 
  Country: None (occurrence: None)
  Receive Date: 20070614
  Receipt Date: 20070412
  Transmission Date: 20071010
  Serious: No
  Sender: FDA-Public Use
  Company Number: US-ASTRAZENECA-2007UW07177

PATIENT
  Age: 83 Year
  Sex: Female

DRUGS (4)
  1. ATACAND [Suspect]
     Route: 048
     Dates: start: 20070327
  2. LIPITOR [Concomitant]
  3. PROTONIX [Concomitant]
  4. METOPROLOL SUCCINATE [Concomitant]

REACTIONS (2)
  - ASTHENIA [None]
  - FALL [None]
